FAERS Safety Report 10979221 (Version 1)
Quarter: 2015Q1

REPORT INFORMATION
  Report Type: Spontaneous
  Country: ES (occurrence: None)
  Receive Date: 20150327
  Receipt Date: 20150327
  Transmission Date: 20150721
  Serious: Yes (Other)
  Sender: FDA-Public Use
  Company Number: GTI003097

PATIENT
  Age: 51 Year
  Sex: Female
  Weight: 54 kg

DRUGS (5)
  1. PULMICORT TURBUHALER [Concomitant]
     Active Substance: BUDESONIDE
  2. PROLASTINA (ALPHA1-PROTEINASE INHIBITOR (HUMAN)) [Suspect]
     Active Substance: .ALPHA.1-PROTEINASE INHIBITOR HUMAN
     Indication: VASCULITIS
     Route: 042
     Dates: start: 20150303
  3. PROLASTINA (ALPHA1-PROTEINASE INHIBITOR (HUMAN)) [Suspect]
     Active Substance: .ALPHA.1-PROTEINASE INHIBITOR HUMAN
     Indication: ALPHA-1 ANTI-TRYPSIN DEFICIENCY
     Route: 042
     Dates: start: 20150303
  4. XAZAL [Concomitant]
  5. TRYPSONE [Concomitant]

REACTIONS (7)
  - Vasculitis [None]
  - Urticaria [None]
  - Swelling face [None]
  - Asthma [None]
  - Petechiae [None]
  - Respiratory tract infection [None]
  - Concomitant disease progression [None]

NARRATIVE: CASE EVENT DATE: 20150309
